FAERS Safety Report 5150402-3 (Version None)
Quarter: 2006Q4

REPORT INFORMATION
  Report Type: 
  Country: None (occurrence: None)
  Receive Date: 20061108
  Receipt Date: 20061025
  Transmission Date: 20070319
  Serious: Yes (Death, Life-Threatening)
  Sender: FDA-Public Use
  Company Number: 2006119892

PATIENT
  Age: 62 Year
  Sex: Female

DRUGS (7)
  1. DOXORUBICIN HCL [Suspect]
     Indication: CHRONIC LYMPHOCYTIC LEUKAEMIA
     Dates: start: 20030901, end: 20060201
  2. CYCLOPHOSPHAMIDE [Suspect]
     Indication: CHRONIC LYMPHOCYTIC LEUKAEMIA
     Dates: start: 20030901, end: 20040201
  3. RITUXIMAB (RITUXIMAB) [Suspect]
     Indication: CHRONIC LYMPHOCYTIC LEUKAEMIA
     Dates: start: 20030901, end: 20060201
  4. VINCRISTINE [Suspect]
     Indication: CHRONIC LYMPHOCYTIC LEUKAEMIA
     Dates: start: 20030901, end: 20040201
  5. PREDNISONE TAB [Suspect]
     Indication: CHRONIC LYMPHOCYTIC LEUKAEMIA
     Dates: start: 20030901, end: 20040201
  6. CHLORAMBUCIL (CHLORAMBUCIL) [Concomitant]
  7. FLUDARABINE PHOSPHATE [Concomitant]

REACTIONS (4)
  - DEMYELINATION [None]
  - JC VIRUS INFECTION [None]
  - MUSCLE TWITCHING [None]
  - PROGRESSIVE MULTIFOCAL LEUKOENCEPHALOPATHY [None]
